FAERS Safety Report 7958461-7 (Version None)
Quarter: 2011Q4

REPORT INFORMATION
  Report Type: 
  Country: None (occurrence: None)
  Receive Date: 20111205
  Receipt Date: 20111124
  Transmission Date: 20120403
  Serious: Yes (Hospitalization)
  Sender: FDA-Public Use
  Company Number: CA-ELI_LILLY_AND_COMPANY-CA201111007873

PATIENT
  Age: 87 Year
  Sex: Female

DRUGS (10)
  1. FORTEO [Suspect]
     Dosage: 20 UG, QD
     Route: 058
     Dates: start: 20111121
  2. PULMICORT [Concomitant]
  3. VITAMIN D [Concomitant]
  4. FORTEO [Suspect]
     Indication: OSTEOPOROSIS
     Dosage: 20 UG, QD
     Route: 058
     Dates: start: 20100205, end: 20111119
  5. SPIRIVA [Concomitant]
  6. CALCIUM [Concomitant]
  7. IRON [Concomitant]
  8. LIPITOR [Concomitant]
  9. ASPIRIN [Concomitant]
     Dosage: 81 MG, UNK
  10. VENTOLIN                                /SCH/ [Concomitant]

REACTIONS (2)
  - CHOLELITHOTOMY [None]
  - GASTROINTESTINAL TRACT IRRITATION [None]
